FAERS Safety Report 6930280-X (Version None)
Quarter: 2010Q3

REPORT INFORMATION
  Report Type: 
  Country: None (occurrence: None)
  Receive Date: 20100818
  Receipt Date: 20100804
  Transmission Date: 20110219
  Serious: No
  Sender: FDA-Public Use
  Company Number: US-BAYER-201025892NA

PATIENT
  Age: 51 Year
  Sex: Female

DRUGS (1)
  1. MAGNEVIST [Suspect]
     Indication: DEAFNESS
     Dosage: TOTAL DAILY DOSE: 15 ML
     Dates: start: 20100614, end: 20100614

REACTIONS (3)
  - COUGH [None]
  - NASAL DISCOMFORT [None]
  - THROAT IRRITATION [None]
